FAERS Safety Report 19802642 (Version 1)
Quarter: 2021Q3

REPORT INFORMATION
  Report Type: Spontaneous
  Country: CA (occurrence: CA)
  Receive Date: 20210908
  Receipt Date: 20210908
  Transmission Date: 20211014
  Serious: Yes (Life-Threatening, Hospitalization, Disabling)
  Sender: FDA-Public Use
  Company Number: CA-TEVA-2021-CA-1949638

PATIENT
  Age: 51 Year
  Sex: Male

DRUGS (5)
  1. SERTRALINE [Suspect]
     Active Substance: SERTRALINE HYDROCHLORIDE
     Dosage: 50 MILLIGRAM DAILY;
     Route: 048
  2. FLUDARABINE [Concomitant]
     Active Substance: FLUDARABINE PHOSPHATE
  3. OLANZAPINE. [Suspect]
     Active Substance: OLANZAPINE
     Route: 065
  4. PALIPERIDONE PALMITATE [Concomitant]
     Active Substance: PALIPERIDONE PALMITATE
     Route: 030
  5. OLANZAPINE. [Suspect]
     Active Substance: OLANZAPINE
     Indication: SCHIZOPHRENIA
     Dosage: 25 MILLIGRAM DAILY;
     Route: 048

REACTIONS (9)
  - Feeling abnormal [Unknown]
  - Paraesthesia [Unknown]
  - Skull fracture [Unknown]
  - Dizziness [Unknown]
  - Haemorrhage intracranial [Unknown]
  - Loss of consciousness [Unknown]
  - Musculoskeletal stiffness [Unknown]
  - Orthostatic hypotension [Unknown]
  - Fall [Unknown]
